FAERS Safety Report 24311202 (Version 2)
Quarter: 2025Q2

REPORT INFORMATION
  Report Type: Spontaneous
  Country: US (occurrence: US)
  Receive Date: 20240912
  Receipt Date: 20250604
  Transmission Date: 20250717
  Serious: No
  Sender: NOVEN
  Company Number: US-NOVEN PHARMACEUTICALS, INC.-2023-NOV-US001183

PATIENT
  Sex: Female

DRUGS (3)
  1. COMBIPATCH [Suspect]
     Active Substance: ESTRADIOL\NORETHINDRONE ACETATE
     Indication: Menopause
     Route: 062
     Dates: start: 2023
  2. COMBIPATCH [Suspect]
     Active Substance: ESTRADIOL\NORETHINDRONE ACETATE
     Route: 062
     Dates: start: 2023
  3. COMBIPATCH [Suspect]
     Active Substance: ESTRADIOL\NORETHINDRONE ACETATE
     Route: 062
     Dates: start: 2013

REACTIONS (5)
  - Scratch [Unknown]
  - Application site pruritus [Unknown]
  - Application site erythema [Recovered/Resolved]
  - Product adhesion issue [Unknown]
  - Device breakage [Unknown]

NARRATIVE: CASE EVENT DATE: 20230101
